FAERS Safety Report 5880403-9 (Version None)
Quarter: 2008Q3

REPORT INFORMATION
  Report Type: 
  Country: None (occurrence: None)
  Receive Date: 20080912
  Receipt Date: 20080825
  Transmission Date: 20090109
  Serious: No
  Sender: FDA-Public Use
  Company Number: US-ABBOTT-08P-163-0437400-00

PATIENT
  Sex: Female
  Weight: 43.584 kg

DRUGS (4)
  1. HUMIRA [Suspect]
     Indication: RHEUMATOID ARTHRITIS
     Route: 058
     Dates: start: 20030101, end: 20080101
  2. HUMIRA [Suspect]
     Dates: start: 20080101, end: 20080401
  3. METHOTREXATE SODIUM [Concomitant]
     Indication: RHEUMATOID ARTHRITIS
     Route: 048
  4. ALENDRONATE SODIUM [Concomitant]
     Indication: OSTEOARTHRITIS
     Route: 048

REACTIONS (5)
  - ACCIDENTAL EXPOSURE [None]
  - PAIN [None]
  - PITUITARY TUMOUR [None]
  - SWELLING [None]
  - WEIGHT DECREASED [None]
